FAERS Safety Report 7141733-6 (Version None)
Quarter: 2010Q4

REPORT INFORMATION
  Report Type: 
  Country: None (occurrence: None)
  Receive Date: 20101207
  Receipt Date: 20101126
  Transmission Date: 20110411
  Serious: Yes (Hospitalization)
  Sender: FDA-Public Use
  Company Number: FR-KINGPHARMUSA00001-K201001184

PATIENT
  Age: 57 Year
  Sex: Female

DRUGS (7)
  1. ALTACE [Suspect]
     Indication: HYPERTENSION
     Dosage: 2.5 MG, QD
     Route: 048
     Dates: start: 20080101, end: 20100528
  2. DICLOFENAC [Suspect]
     Indication: BONE PAIN
     Dosage: 75 MG, BID
     Route: 048
     Dates: start: 20041101, end: 20100525
  3. TRAMADOL HCL [Concomitant]
     Dosage: 100 MG, BID
     Dates: start: 20070801, end: 20100528
  4. METFORMIN [Concomitant]
     Indication: DIABETES MELLITUS
     Dosage: 850 AND 1000 MG DAILY
     Dates: start: 20080101, end: 20100529
  5. GABAPENTIN [Concomitant]
     Indication: NEUROBORRELIOSIS
     Dosage: 600 MG, QID
     Dates: start: 20070101, end: 20100525
  6. RESTEX [Concomitant]
     Indication: RESTLESS LEGS SYNDROME
     Dosage: 25/100 MG TWICE
     Dates: start: 20060101, end: 20100525
  7. VIANI [Concomitant]
     Indication: ASTHMA
     Dosage: 25/125 MCG 2 PUFFS DAILY
     Dates: start: 20050101, end: 20100525

REACTIONS (9)
  - BRADYCARDIA [None]
  - DYSPNOEA [None]
  - HYPERKALAEMIA [None]
  - KLEBSIELLA INFECTION [None]
  - OEDEMA [None]
  - RENAL FAILURE ACUTE [None]
  - RESPIRATORY FAILURE [None]
  - SEPTIC SHOCK [None]
  - WEIGHT INCREASED [None]
